FAERS Safety Report 15221147 (Version 2)
Quarter: 2018Q3

REPORT INFORMATION
  Report Type: Report from Study
  Country: CA (occurrence: CA)
  Receive Date: 20180731
  Receipt Date: 20180905
  Transmission Date: 20181010
  Serious: Yes (Other)
  Sender: FDA-Public Use
  Company Number: CA-HLSUS-2018-CA-001116

PATIENT
  Age: 56 Year
  Sex: Female
  Weight: 65.7 kg

DRUGS (2)
  1. SULPIRIDE [Concomitant]
     Active Substance: SULPIRIDE
     Dosage: 100MG BID
     Route: 048
  2. CLOZARIL [Suspect]
     Active Substance: CLOZAPINE
     Dosage: 100MG
     Route: 048
     Dates: start: 20161027, end: 20180721

REACTIONS (3)
  - Deep vein thrombosis [Unknown]
  - Constipation [Unknown]
  - Adverse drug reaction [Unknown]

NARRATIVE: CASE EVENT DATE: 20180624
